FAERS Safety Report 4987467-5 (Version None)
Quarter: 2006Q2

REPORT INFORMATION
  Report Type: 
  Country: None (occurrence: None)
  Receive Date: 20060501
  Receipt Date: 20050926
  Transmission Date: 20061013
  Serious: Yes (Hospitalization)
  Sender: FDA-Public Use
  Company Number: US-MERCK-0509USA03771

PATIENT
  Age: 57 Year
  Sex: Male
  Weight: 75 kg

DRUGS (3)
  1. VIOXX [Suspect]
     Indication: ARTHRITIS
     Route: 048
  2. VIOXX [Suspect]
     Route: 048
  3. VIOXX [Suspect]
     Route: 048

REACTIONS (15)
  - ACUTE CORONARY SYNDROME [None]
  - BACK PAIN [None]
  - FASCIITIS [None]
  - FLANK PAIN [None]
  - HAEMATURIA [None]
  - HYPERLIPIDAEMIA [None]
  - HYPERTENSION [None]
  - HYPERTONIC BLADDER [None]
  - INTERVERTEBRAL DISC PROTRUSION [None]
  - MYOCARDIAL INFARCTION [None]
  - MYOSITIS [None]
  - ROAD TRAFFIC ACCIDENT [None]
  - SPINAL DISORDER [None]
  - SPINAL OSTEOARTHRITIS [None]
  - URINARY TRACT INFECTION [None]
